FAERS Safety Report 9206355 (Version 2)
Quarter: 2013Q2

REPORT INFORMATION
  Report Type: Spontaneous
  Country: NL (occurrence: NL)
  Receive Date: 20130403
  Receipt Date: 20130416
  Transmission Date: 20140414
  Serious: Yes (Hospitalization)
  Sender: FDA-Public Use
  Company Number: PHHY2013NL031142

PATIENT
  Sex: Male

DRUGS (13)
  1. ZOMETA [Suspect]
     Indication: PROSTATE CANCER METASTATIC
     Dosage: 4 MG/100 ML,ONCE PER 28 DAYS
     Dates: start: 20110711
  2. ZOMETA [Suspect]
     Dosage: UNK UKN, ONE EVERY MONTH
     Route: 042
     Dates: start: 201208
  3. ZOMETA [Suspect]
     Dosage: 4 MG/100 ML,ONCE PER 28 DAYS
     Dates: start: 20130227
  4. ZOMETA [Suspect]
     Dosage: 4 MG/100 ML,ONCE PER 28 DAYS
     Dates: start: 20130328
  5. ESOMEPRAZOLE [Concomitant]
     Dosage: 20 MG, QD
  6. PREDNISONE [Concomitant]
     Dosage: 5 MG, 2 DD
  7. METOPROLOL [Concomitant]
     Dosage: 50 MG, QD
  8. ALFUZOSINA [Concomitant]
     Dosage: 10 MG, QD
  9. LOSARTAN POTASSIUM [Concomitant]
     Dosage: 50 MG, QD
  10. LOPERAMIDE [Concomitant]
     Dosage: 2 MG, AS NECESSARY
  11. ZOFRAN [Concomitant]
     Dosage: 8 MG, AS NECESSARY
  12. CIPROFLOXACINA//CIPROFLOXACIN [Concomitant]
     Dosage: 500 MG, 2 DD
  13. CABAZITAXEL [Concomitant]
     Dosage: UNK UKN, ONCE EVERY 3 WEEKS
     Route: 042

REACTIONS (4)
  - Bacteraemia [Recovered/Resolved]
  - Pneumonia [Recovered/Resolved]
  - Pyrexia [Unknown]
  - Chills [Unknown]
